FAERS Safety Report 17403048 (Version 2)
Quarter: 2020Q1

REPORT INFORMATION
  Report Type: Spontaneous
  Country: JP (occurrence: JP)
  Receive Date: 20200211
  Receipt Date: 20200218
  Transmission Date: 20200409
  Serious: Yes (Hospitalization)
  Sender: FDA-Public Use
  Company Number: JP-PFIZER INC-2020058945

PATIENT
  Sex: Male

DRUGS (1)
  1. VYNDAQEL [Suspect]
     Active Substance: TAFAMIDIS MEGLUMINE
     Indication: HEREDITARY NEUROPATHIC AMYLOIDOSIS
     Dosage: 20 (UNIT NOT PROVIDED)
     Route: 048

REACTIONS (3)
  - Hereditary neuropathic amyloidosis [Unknown]
  - Cardiac disorder [Unknown]
  - Disease progression [Unknown]

NARRATIVE: CASE EVENT DATE: 202001
